FAERS Safety Report 21796041 (Version 1)
Quarter: 2022Q4

REPORT INFORMATION
  Report Type: Spontaneous
  Country: US (occurrence: None)
  Receive Date: 20221228
  Receipt Date: 20221228
  Transmission Date: 20230112
  Serious: Yes (Hospitalization)
  Sender: FDA-Public Use
  Company Number: None

PATIENT
  Age: 64 Year
  Sex: Female

DRUGS (3)
  1. IMATINIB MESYLATE [Suspect]
     Active Substance: IMATINIB MESYLATE
     Indication: Systemic mastocytosis
     Dosage: TAKE 1 TABLET BY MOUTH DAILY?
     Route: 048
     Dates: start: 20221130
  2. ACYCLOVIR TAB [Concomitant]
  3. FLUCONAZOLE TAB [Concomitant]

REACTIONS (2)
  - Chills [None]
  - Full blood count decreased [None]

NARRATIVE: CASE EVENT DATE: 20221227
